FAERS Safety Report 4813009-0 (Version None)
Quarter: 2005Q4

REPORT INFORMATION
  Report Type: 
  Country: None (occurrence: None)
  Receive Date: 20051028
  Receipt Date: 20050602
  Transmission Date: 20060501
  Serious: No
  Sender: FDA-Public Use
  Company Number: US-GLAXOSMITHKLINE-A0560945A

PATIENT
  Age: 9 Year
  Sex: Male

DRUGS (4)
  1. ADVAIR DISKUS 100/50 [Suspect]
     Indication: ASTHMA
     Dosage: 100MCG TWICE PER DAY
     Route: 055
     Dates: start: 20040101, end: 20050101
  2. FLOVENT [Suspect]
     Indication: ASTHMA
     Route: 065
     Dates: start: 20050501, end: 20050601
  3. SEREVENT [Suspect]
     Indication: ASTHMA
     Route: 065
     Dates: start: 20050501, end: 20050601
  4. NO CONCURRENT MEDICATION [Concomitant]

REACTIONS (3)
  - ABDOMINAL PAIN UPPER [None]
  - HEADACHE [None]
  - NAUSEA [None]
